FAERS Safety Report 4627974-8 (Version None)
Quarter: 2005Q2

REPORT INFORMATION
  Report Type: 
  Country: None (occurrence: None)
  Receive Date: 20050401
  Receipt Date: 20050318
  Transmission Date: 20051028
  Serious: Yes (Other)
  Sender: FDA-Public Use
  Company Number: 2005005740

PATIENT
  Age: 62 Year
  Sex: Female
  Weight: 82.7361 kg

DRUGS (2)
  1. BENGAY ULTRA STRENGTH PATCH (MENTHOL) [Suspect]
     Indication: MYALGIA
     Dosage: 2 PATCHS EACH DAY, TOPICAL
     Route: 061
     Dates: start: 20041201, end: 20041201
  2. ANTIHYPERTENSIVES (ANTIHYPERTENSIVES) [Concomitant]

REACTIONS (11)
  - CELLULITIS [None]
  - DRUG HYPERSENSITIVITY [None]
  - INFECTED SKIN ULCER [None]
  - INFECTION [None]
  - MALAISE [None]
  - PAIN [None]
  - PRURITUS [None]
  - RASH ERYTHEMATOUS [None]
  - SCAR [None]
  - SKIN DISORDER [None]
  - THERMAL BURN [None]
